FAERS Safety Report 9052479 (Version 2)
Quarter: 2013Q1

REPORT INFORMATION
  Report Type: Spontaneous
  Country: DE (occurrence: DE)
  Receive Date: 20130207
  Receipt Date: 20130226
  Transmission Date: 20140127
  Serious: Yes (Death)
  Sender: FDA-Public Use
  Company Number: DE-JNJFOC-20130202747

PATIENT
  Age: 76 None
  Sex: Female

DRUGS (2)
  1. XARELTO [Suspect]
     Indication: CEREBROVASCULAR ACCIDENT PROPHYLAXIS
     Route: 048
  2. XARELTO [Suspect]
     Indication: ATRIAL FIBRILLATION
     Route: 048

REACTIONS (8)
  - Intraventricular haemorrhage [Fatal]
  - Brain compression [Fatal]
  - Cerebral haemorrhage [Fatal]
  - Coma [Fatal]
  - Diplopia [Fatal]
  - Headache [Fatal]
  - Hemiparesis [Fatal]
  - Visual impairment [Fatal]
